FAERS Safety Report 16086745 (Version 1)
Quarter: 2019Q1

REPORT INFORMATION
  Report Type: Spontaneous
  Country: US (occurrence: US)
  Receive Date: 20190318
  Receipt Date: 20190318
  Transmission Date: 20190418
  Serious: Yes (Other)
  Sender: FDA-Public Use
  Company Number: PHEH2019US010870

PATIENT
  Sex: Female

DRUGS (1)
  1. RITALIN [Suspect]
     Active Substance: METHYLPHENIDATE HYDROCHLORIDE
     Indication: SLEEP DISORDER
     Dosage: 20 MG, QID
     Route: 048

REACTIONS (4)
  - Cataplexy [Unknown]
  - Movement disorder [Unknown]
  - Feeling abnormal [Unknown]
  - Freezing phenomenon [Unknown]
